FAERS Safety Report 8545877-3 (Version None)
Quarter: 2012Q3

REPORT INFORMATION
  Report Type: 
  Country: None (occurrence: None)
  Receive Date: 20120727
  Receipt Date: 20111116
  Transmission Date: 20120928
  Serious: No
  Sender: FDA-Public Use
  Company Number: US-ASTRAZENECA-2011SE69841

PATIENT
  Age: 30 Year
  Sex: Female
  Weight: 72.6 kg

DRUGS (5)
  1. SEROQUEL XR [Suspect]
     Indication: SLEEP DISORDER
     Route: 048
     Dates: start: 20080101
  2. SEROQUEL XR [Suspect]
     Indication: AFFECTIVE DISORDER
     Route: 048
     Dates: start: 20080101
  3. SEROQUEL XR [Suspect]
     Route: 048
  4. SEROQUEL XR [Suspect]
     Route: 048
  5. PERCOPET [Concomitant]
     Indication: PAIN

REACTIONS (3)
  - PAIN [None]
  - BIPOLAR DISORDER [None]
  - DRUG DOSE OMISSION [None]
